FAERS Safety Report 16262363 (Version 2)
Quarter: 2019Q3

REPORT INFORMATION
  Report Type: Report from Study
  Country: CO (occurrence: CO)
  Receive Date: 20190501
  Receipt Date: 20190703
  Transmission Date: 20191004
  Serious: Yes (Other)
  Sender: FDA-Public Use
  Company Number: CO-BIOGEN-2019BI00731419

PATIENT
  Age: 42 Year
  Sex: Female
  Weight: 55 kg

DRUGS (1)
  1. AVONEX [Suspect]
     Active Substance: INTERFERON BETA-1A
     Indication: MULTIPLE SCLEROSIS
     Route: 030
     Dates: start: 20190422

REACTIONS (1)
  - Deafness [Not Recovered/Not Resolved]

NARRATIVE: CASE EVENT DATE: 20190422
